FAERS Safety Report 4794979-6 (Version None)
Quarter: 2005Q4

REPORT INFORMATION
  Report Type: 
  Country: None (occurrence: None)
  Receive Date: 20051006
  Receipt Date: 20050926
  Transmission Date: 20060501
  Serious: Yes (Disabling)
  Sender: FDA-Public Use
  Company Number: 12459

PATIENT
  Age: 53 Year
  Sex: Female

DRUGS (4)
  1. METHOTREXATE [Suspect]
     Indication: PSORIASIS
     Dosage: 10 MG WEEKLY PO
     Route: 048
  2. LITHIUM [Concomitant]
  3. ESCITALOPRAM OXALATE [Concomitant]
  4. OLANZAPINE [Concomitant]

REACTIONS (4)
  - AGGRESSION [None]
  - HISTRIONIC PERSONALITY DISORDER [None]
  - MENTAL DISORDER [None]
  - MOOD ALTERED [None]
